FAERS Safety Report 24176098 (Version 1)
Quarter: 2024Q3

REPORT INFORMATION
  Report Type: Spontaneous
  Country: JP (occurrence: JP)
  Receive Date: 20240806
  Receipt Date: 20240806
  Transmission Date: 20241016
  Serious: Yes (Other)
  Sender: SANDOZ
  Company Number: JP-SANDOZ-SDZ2024JP024751

PATIENT
  Age: 50 Year
  Sex: Male

DRUGS (1)
  1. NELARABINE [Suspect]
     Active Substance: NELARABINE
     Indication: T-cell lymphoma recurrent
     Dosage: 1500 MG/M2 ADMINISTERED THREE TIMES
     Route: 065
     Dates: start: 202210

REACTIONS (3)
  - Leukoencephalopathy [Unknown]
  - Ataxia [Unknown]
  - Hypoaesthesia [Unknown]
